FAERS Safety Report 8117331 (Version 3)
Quarter: 2013Q1

REPORT INFORMATION
  Report Type: Report from Study
  Country: JP (occurrence: JP)
  Receive Date: 20110901
  Receipt Date: 20130214
  Transmission Date: 20140127
  Serious: Yes (Other)
  Sender: FDA-Public Use
  Company Number: JP-JNJFOC-20110812948

PATIENT
  Age: 54 Year
  Sex: Male
  Weight: 53 kg

DRUGS (21)
  1. REMICADE [Suspect]
     Indication: PSORIATIC ARTHROPATHY
     Dosage: 1ST DOSE
     Route: 042
     Dates: start: 20100705
  2. REMICADE [Suspect]
     Indication: PSORIATIC ARTHROPATHY
     Route: 042
     Dates: start: 20100816
  3. REMICADE [Suspect]
     Indication: PSORIATIC ARTHROPATHY
     Dosage: 3RD DOSE
     Route: 042
     Dates: start: 20100917
  4. REMICADE [Suspect]
     Indication: PSORIATIC ARTHROPATHY
     Dosage: 4TH DOSE
     Route: 042
     Dates: start: 20101206
  5. REMICADE [Suspect]
     Indication: PSORIATIC ARTHROPATHY
     Route: 042
     Dates: start: 20110214
  6. ISCOTIN [Concomitant]
     Indication: ANTIBIOTIC PROPHYLAXIS
     Dates: start: 20100712
  7. ROHYPNOL [Concomitant]
     Indication: INSOMNIA
     Route: 048
     Dates: start: 20100722
  8. SEPAZON [Concomitant]
     Indication: PSYCHOSOMATIC DISEASE
     Route: 048
     Dates: start: 20100722
  9. MAGMITT [Concomitant]
     Indication: CONSTIPATION
     Route: 048
     Dates: start: 20100730
  10. PREDNISOLONE [Concomitant]
     Indication: PSORIATIC ARTHROPATHY
     Route: 048
     Dates: start: 20100820
  11. METHOTREXATE [Concomitant]
     Indication: PSORIATIC ARTHROPATHY
     Route: 048
     Dates: start: 20100827, end: 20101008
  12. FOIPAN [Concomitant]
     Indication: PANCREATITIS CHRONIC
     Route: 048
     Dates: start: 20100924
  13. OMEPRAL [Concomitant]
     Indication: GASTRIC ULCER
     Route: 048
     Dates: start: 20100927
  14. RINDERON-VG [Concomitant]
     Indication: PSORIATIC ARTHROPATHY
     Route: 003
  15. SALICYLIC ACID [Concomitant]
     Indication: PSORIATIC ARTHROPATHY
     Route: 003
  16. DERMOVATE [Concomitant]
     Indication: PSORIATIC ARTHROPATHY
     Route: 003
  17. MYSLEE [Concomitant]
     Indication: INSOMNIA
     Route: 048
  18. ALLELOCK [Concomitant]
     Indication: PSORIATIC ARTHROPATHY
     Route: 048
  19. INBESTAN [Concomitant]
     Indication: PSORIATIC ARTHROPATHY
     Route: 048
  20. LOXONIN [Concomitant]
  21. RHYTHMY [Concomitant]
     Indication: INSOMNIA
     Dates: start: 20101126

REACTIONS (2)
  - Pancreatitis chronic [Recovered/Resolved]
  - Anaemia [Recovered/Resolved]
